FAERS Safety Report 16415559 (Version 1)
Quarter: 2019Q2

REPORT INFORMATION
  Report Type: Spontaneous
  Country: US (occurrence: US)
  Receive Date: 20190611
  Receipt Date: 20190611
  Transmission Date: 20190711
  Serious: No
  Sender: FDA-Public Use
  Company Number: US-SA-2019SA154741

PATIENT
  Age: 74 Year
  Sex: Female

DRUGS (1)
  1. TOUJEO [Suspect]
     Active Substance: INSULIN GLARGINE
     Indication: TYPE 2 DIABETES MELLITUS
     Dosage: 47 U, QD
     Route: 065
     Dates: start: 201606

REACTIONS (1)
  - Glycosylated haemoglobin increased [Unknown]
